FAERS Safety Report 4997142-9 (Version None)
Quarter: 2006Q1

REPORT INFORMATION
  Report Type: 
  Country: None (occurrence: None)
  Receive Date: 20060315
  Receipt Date: 20051221
  Transmission Date: 20060701
  Serious: Yes (Other)
  Sender: FDA-Public Use
  Company Number: 429671

PATIENT
  Sex: Female

DRUGS (3)
  1. BONIVA [Suspect]
     Indication: DRUG USE FOR UNKNOWN INDICATION
     Dates: start: 20050615
  2. ANTIBIOTIC NOS (ANTIBIOTIC NOS) [Concomitant]
  3. PHENERGAN W CODEINE (CODEINE PHOSPHATE/PROMETHAZINE HYDROCHLORIDE) [Concomitant]

REACTIONS (1)
  - NASOPHARYNGITIS [None]
